FAERS Safety Report 11594453 (Version 1)
Quarter: 2015Q4

REPORT INFORMATION
  Report Type: Spontaneous
  Country: US (occurrence: US)
  Receive Date: 20151005
  Receipt Date: 20151005
  Transmission Date: 20160304
  Serious: Yes (Other)
  Sender: FDA-Public Use
  Company Number: US-DSJP-DSU-2015-130763

PATIENT

DRUGS (5)
  1. VAGISIL                            /00104701/ [Concomitant]
     Indication: PRODUCT USED FOR UNKNOWN INDICATION
     Dosage: UNK
  2. WELCHOL [Suspect]
     Active Substance: COLESEVELAM HYDROCHLORIDE
     Dosage: 1250 MG, QD
     Dates: start: 20150806
  3. LYRICA [Concomitant]
     Active Substance: PREGABALIN
     Indication: FIBROMYALGIA
     Dosage: UNK UNK, AS NEEDED
     Dates: start: 201509
  4. WELCHOL [Suspect]
     Active Substance: COLESEVELAM HYDROCHLORIDE
     Indication: BLOOD CHOLESTEROL
     Dosage: 1250 MG, QD
     Dates: start: 201507, end: 20150803
  5. COENZYME Q10 [Concomitant]
     Active Substance: UBIDECARENONE
     Indication: FIBROMYALGIA
     Dosage: UNK, AS NEEDED

REACTIONS (3)
  - Neck pain [Recovering/Resolving]
  - Muscle tightness [Not Recovered/Not Resolved]
  - Off label use [Unknown]

NARRATIVE: CASE EVENT DATE: 201507
